FAERS Safety Report 12887241 (Version 1)
Quarter: 2016Q4

REPORT INFORMATION
  Report Type: Spontaneous
  Country: US (occurrence: US)
  Receive Date: 20161026
  Receipt Date: 20161026
  Transmission Date: 20170207
  Serious: No
  Sender: FDA-Public Use
  Company Number: US-ABBVIE-16P-163-1748836-00

PATIENT
  Sex: Female

DRUGS (1)
  1. LUPRON DEPOT [Suspect]
     Active Substance: LEUPROLIDE ACETATE
     Indication: ENDOMETRIOSIS
     Route: 050

REACTIONS (7)
  - Nausea [Unknown]
  - Eating disorder [Unknown]
  - Night sweats [Unknown]
  - Insomnia [Unknown]
  - Pain [Unknown]
  - Mood swings [Unknown]
  - Hot flush [Unknown]
